FAERS Safety Report 4391294-X (Version None)
Quarter: 2004Q2

REPORT INFORMATION
  Report Type: 
  Country: None (occurrence: None)
  Receive Date: 20040621
  Receipt Date: 20031126
  Transmission Date: 20050107
  Serious: Yes (Hospitalization, Other)
  Sender: FDA-Public Use
  Company Number: USA-2002-0001729

PATIENT
  Age: 31 Year
  Sex: Male
  Weight: 72.6 kg

DRUGS (8)
  1. OXYCONTIN [Suspect]
     Indication: PAIN
     Dosage: 40 MG, SEE TEST, ORAL
     Route: 048
     Dates: start: 20000929
  2. LORTAB [Concomitant]
  3. LIPITOR [Concomitant]
  4. ZESTRIL [Concomitant]
  5. DURAGESIC [Concomitant]
  6. CATAPRESS [Concomitant]
  7. XANAX [Concomitant]
  8. MS CONTIN [Concomitant]

REACTIONS (7)
  - BACK INJURY [None]
  - DRUG ABUSER [None]
  - DRUG DEPENDENCE [None]
  - DRUG WITHDRAWAL SYNDROME [None]
  - EMOTIONAL DISTRESS [None]
  - NECK PAIN [None]
  - PAIN [None]
